FAERS Safety Report 8195747-8 (Version None)
Quarter: 2012Q1

REPORT INFORMATION
  Report Type: 
  Country: None (occurrence: None)
  Receive Date: 20120308
  Receipt Date: 20120305
  Transmission Date: 20120608
  Serious: Yes (Other)
  Sender: FDA-Public Use
  Company Number: US-PFIZER INC-2012028563

PATIENT
  Sex: Female
  Weight: 58.503 kg

DRUGS (4)
  1. NEURONTIN [Suspect]
     Indication: NEURALGIA
     Dosage: 600 MG, 3X/DAY
     Dates: end: 20110101
  2. CELEBREX [Suspect]
     Indication: ARTHRITIS
     Dosage: UNK
     Route: 048
     Dates: end: 20110101
  3. NEURONTIN [Suspect]
     Dosage: 800 MG, 3X/DAY
  4. OXYCODONE HCL AND ACETAMINOPHEN [Concomitant]
     Indication: BACK PAIN
     Dosage: UNK
     Route: 048

REACTIONS (6)
  - DIABETES MELLITUS [None]
  - BLOOD CHOLESTEROL INCREASED [None]
  - JOINT SWELLING [None]
  - DRUG INEFFECTIVE [None]
  - NEURALGIA [None]
  - EXOSTOSIS [None]
